FAERS Safety Report 15618107 (Version 1)
Quarter: 2018Q4

REPORT INFORMATION
  Report Type: Spontaneous
  Country: EG (occurrence: EG)
  Receive Date: 20181114
  Receipt Date: 20181114
  Transmission Date: 20190205
  Serious: Yes (Death, Life-Threatening, Hospitalization, Congenital Anomaly)
  Sender: FDA-Public Use
  Company Number: EG-BIOMARINAP-EG-2018-120667

PATIENT
  Age: 9 Year
  Sex: Male
  Weight: 12 kg

DRUGS (1)
  1. VIMIZIM [Suspect]
     Active Substance: ELOSULFASE ALFA
     Indication: MUCOPOLYSACCHARIDOSIS IV
     Dosage: UNK, QW
     Route: 042
     Dates: start: 20180514

REACTIONS (2)
  - Pneumonia viral [Fatal]
  - Diaphragmatic hernia [Not Recovered/Not Resolved]

NARRATIVE: CASE EVENT DATE: 20180521
